FAERS Safety Report 16205753 (Version 1)
Quarter: 2019Q2

REPORT INFORMATION
  Report Type: Spontaneous
  Country: CA (occurrence: CA)
  Receive Date: 20190417
  Receipt Date: 20190417
  Transmission Date: 20190711
  Serious: Yes (Other)
  Sender: FDA-Public Use
  Company Number: CA-AUROBINDO-AUR-APL-2019-020256

PATIENT

DRUGS (5)
  1. AFINITOR [Suspect]
     Active Substance: EVEROLIMUS
     Indication: PANCREATIC NEUROENDOCRINE TUMOUR
     Dosage: 5 MILLIGRAM 1 EVERY 1 DAY
     Route: 048
  2. SANDOSTATIN [Suspect]
     Active Substance: OCTREOTIDE ACETATE
     Indication: PANCREATIC NEUROENDOCRINE TUMOUR
     Dosage: 30 MILLIGRAM 1 EVERY 1 MONTH
     Route: 030
  3. AMLODIPINE [Suspect]
     Active Substance: AMLODIPINE BESYLATE
     Indication: HYPERTENSION
     Dosage: 0.5 DOSAGE FORM 1 EVERY 1 DAY
     Route: 065
  4. AMLODIPINE [Suspect]
     Active Substance: AMLODIPINE BESYLATE
     Dosage: 1 DOSAGE FORM 1 EVERY 1 DAY
     Route: 065
  5. AFINITOR [Suspect]
     Active Substance: EVEROLIMUS
     Dosage: 10 MILLIGRAM 1 EVERY 1 DAY
     Route: 048

REACTIONS (6)
  - Productive cough [Recovering/Resolving]
  - Pancreatic neuroendocrine tumour metastatic [Recovering/Resolving]
  - Pyrexia [Recovering/Resolving]
  - Blood pressure systolic increased [Recovering/Resolving]
  - Heart rate increased [Recovering/Resolving]
  - Malignant neoplasm progression [Recovering/Resolving]
